FAERS Safety Report 17875315 (Version 2)
Quarter: 2020Q2

REPORT INFORMATION
  Report Type: Spontaneous
  Country: SV (occurrence: SV)
  Receive Date: 20200609
  Receipt Date: 20200627
  Transmission Date: 20200714
  Serious: Yes (Death, Life-Threatening, Other)
  Sender: FDA-Public Use
  Company Number: NVSC2020SV158979

PATIENT
  Age: 25 Year
  Sex: Male

DRUGS (3)
  1. GLIVEC [Suspect]
     Active Substance: IMATINIB MESYLATE
     Indication: CHRONIC MYELOID LEUKAEMIA
     Dosage: 400 MG, QD (1 X 400 MG) (STOP AT THE BEGINNING OF 2019)
     Route: 065
     Dates: start: 2005
  2. GLIVEC [Suspect]
     Active Substance: IMATINIB MESYLATE
     Dosage: 400 MG, Q12H (SEEMS IT OCCURRED IN 2018)
     Route: 065
  3. GLIVEC [Suspect]
     Active Substance: IMATINIB MESYLATE
     Dosage: 400 MG, QD
     Route: 065

REACTIONS (10)
  - Drug ineffective [Unknown]
  - Platelet count decreased [Unknown]
  - Blast cell count increased [Unknown]
  - White blood cell count increased [Unknown]
  - Chronic myeloid leukaemia [Unknown]
  - Malignant neoplasm progression [Unknown]
  - Haemoglobin decreased [Unknown]
  - Blood creatinine increased [Unknown]
  - Inappropriate schedule of product administration [Unknown]
  - Pneumonia [Fatal]

NARRATIVE: CASE EVENT DATE: 20190701
